FAERS Safety Report 21471027 (Version 2)
Quarter: 2022Q4

REPORT INFORMATION
  Report Type: Spontaneous
  Country: US (occurrence: US)
  Receive Date: 20221018
  Receipt Date: 20221202
  Transmission Date: 20230113
  Serious: No
  Sender: FDA-Public Use
  Company Number: US-BAYER-2022A140448

PATIENT
  Age: 56 Year
  Sex: Female

DRUGS (1)
  1. MIRALAX [Suspect]
     Active Substance: POLYETHYLENE GLYCOL 3350
     Indication: Gastrointestinal disorder
     Dosage: 17 G, QD
     Route: 048
     Dates: start: 20221008

REACTIONS (5)
  - Throat irritation [None]
  - Incorrect dose administered [Unknown]
  - Suspected product contamination [None]
  - Product taste abnormal [None]
  - Product solubility abnormal [None]

NARRATIVE: CASE EVENT DATE: 20221008
